FAERS Safety Report 15296785 (Version 1)
Quarter: 2018Q3

REPORT INFORMATION
  Report Type: Report from Study
  Country: AU (occurrence: AU)
  Receive Date: 20180820
  Receipt Date: 20180820
  Transmission Date: 20181010
  Serious: Yes (Hospitalization, Other)
  Sender: FDA-Public Use
  Company Number: AU-IPSEN BIOPHARMACEUTICALS, INC.-2018-12030

PATIENT
  Age: 52 Year
  Sex: Female

DRUGS (1)
  1. SOMATULINE AUTOGEL 60MG [Suspect]
     Active Substance: LANREOTIDE ACETATE
     Indication: ACROMEGALY
     Dosage: 60 MG
     Route: 058
     Dates: start: 20180816

REACTIONS (2)
  - Abdominal pain [Not Recovered/Not Resolved]
  - Intestinal obstruction [Not Recovered/Not Resolved]

NARRATIVE: CASE EVENT DATE: 20180816
